FAERS Safety Report 10978135 (Version 10)
Quarter: 2017Q4

REPORT INFORMATION
  Report Type: Spontaneous
  Country: US (occurrence: US)
  Receive Date: 20150402
  Receipt Date: 20171005
  Transmission Date: 20180320
  Serious: Yes (Hospitalization)
  Sender: FDA-Public Use
  Company Number: US-PFIZER INC-2015111411

PATIENT
  Age: 13 Year
  Sex: Male
  Weight: 31 kg

DRUGS (2)
  1. GENOTROPIN [Suspect]
     Active Substance: SOMATROPIN
     Indication: GROWTH RETARDATION
     Dosage: 1.2 MG, 1X/DAY (7 DAYS/WEEK)
     Route: 058
     Dates: start: 20140912
  2. GENOTROPIN [Suspect]
     Active Substance: SOMATROPIN
     Dosage: 1.7 MG, DAILY
     Dates: start: 20140926

REACTIONS (4)
  - Mental disorder [Not Recovered/Not Resolved]
  - Drug prescribing error [Unknown]
  - Drug dose omission [Not Recovered/Not Resolved]
  - Device issue [Unknown]

NARRATIVE: CASE EVENT DATE: 20170715
